FAERS Safety Report 5110084-3 (Version None)
Quarter: 2006Q3

REPORT INFORMATION
  Report Type: 
  Country: None (occurrence: None)
  Receive Date: 20060919
  Receipt Date: 20060919
  Transmission Date: 20061208
  Serious: Yes (Hospitalization)
  Sender: FDA-Public Use
  Company Number: None

PATIENT
  Sex: Female
  Weight: 54.4316 kg

DRUGS (5)
  1. XYREM [Suspect]
     Indication: CATAPLEXY
     Dosage: 4.5 GM HS PO - 3.0 GM 2 AM PO
     Route: 048
     Dates: start: 20060901, end: 20060915
  2. XYREM [Suspect]
     Indication: NARCOLEPSY
     Dosage: 4.5 GM HS PO - 3.0 GM 2 AM PO
     Route: 048
     Dates: start: 20060901, end: 20060915
  3. . [Concomitant]
  4. . [Concomitant]
  5. . [Concomitant]

REACTIONS (3)
  - RESPIRATORY RATE DECREASED [None]
  - SEDATION [None]
  - THERAPEUTIC RESPONSE DECREASED [None]
